FAERS Safety Report 5528892-3 (Version None)
Quarter: 2007Q4

REPORT INFORMATION
  Report Type: 
  Country: None (occurrence: None)
  Receive Date: 20071113
  Receipt Date: 20070711
  Transmission Date: 20080405
  Serious: No
  Sender: FDA-Public Use
  Company Number: 200714381US

PATIENT
  Age: 78 Year
  Sex: Male

DRUGS (16)
  1. APIDRA [Suspect]
     Indication: TYPE 2 DIABETES MELLITUS
     Dosage: 12 U
     Dates: start: 20070501
  2. OPTICLIK [Suspect]
     Indication: TYPE 2 DIABETES MELLITUS
     Dates: start: 20070501
  3. ALLOPURINOL [Concomitant]
  4. METOPROLOL [Concomitant]
  5. AMLODIPINE, BENAZEPRIL HYDROCHLORIDE (LOTREL /01289101/) [Concomitant]
  6. FUROSEMIDE [Concomitant]
  7. GUAIFENESIN [Concomitant]
  8. LORATADINE [Concomitant]
  9. RABEPRAZOLE SODIUM (ACIPHEX) [Concomitant]
  10. SIMVASTATIN [Concomitant]
  11. FLUTICASONE PROPIONATE, SALMETEROL XINAFOATE (ADVAIR) [Concomitant]
  12. SPIRIVA [Concomitant]
  13. BENZYL BENZOATE [Concomitant]
  14. COUMADIN [Concomitant]
  15. XOPENEX [Concomitant]
  16. VITAMINS NOS (MVI) [Concomitant]

REACTIONS (2)
  - BLOOD GLUCOSE DECREASED [None]
  - OVERDOSE [None]
